FAERS Safety Report 15229572 (Version 1)
Quarter: 2018Q3

REPORT INFORMATION
  Report Type: Spontaneous
  Country: FR (occurrence: FR)
  Receive Date: 20180802
  Receipt Date: 20180802
  Transmission Date: 20181010
  Serious: Yes (Death, Other)
  Sender: FDA-Public Use
  Company Number: FR-AUROBINDO-AUR-APL-2018-038298

PATIENT
  Age: 73 Year
  Sex: Male

DRUGS (2)
  1. CARBOPLATIN. [Suspect]
     Active Substance: CARBOPLATIN
     Indication: MANTLE CELL LYMPHOMA STAGE IV
     Dosage: 570 MILLIGRAM, DAILY
     Route: 042
     Dates: start: 20140128, end: 20140128
  2. ETOPOSIDE. [Interacting]
     Active Substance: ETOPOSIDE
     Indication: MANTLE CELL LYMPHOMA STAGE IV
     Dosage: 200 MILLIGRAM, UNK
     Route: 042
     Dates: start: 20140128, end: 20140129

REACTIONS (4)
  - Agranulocytosis [Fatal]
  - Multiple organ dysfunction syndrome [None]
  - Acute kidney injury [Fatal]
  - Anaemia [Fatal]

NARRATIVE: CASE EVENT DATE: 20140207
